FAERS Safety Report 8421325-9 (Version None)
Quarter: 2012Q2

REPORT INFORMATION
  Report Type: 
  Country: None (occurrence: None)
  Receive Date: 20120323
  Receipt Date: 20110307
  Transmission Date: 20120825
  Serious: Yes (Disabling, Other)
  Sender: FDA-Public Use
  Company Number: 163-21880-11022282

PATIENT
  Sex: Female

DRUGS (2)
  1. MELPHALAN HYDROCHLORIDE [Concomitant]
  2. REVLIMID [Suspect]
     Indication: MULTIPLE MYELOMA
     Dosage: 10 MG, DAILY X 21 DAYS FOR 3 WEEKS, PO
     Route: 048
     Dates: start: 20100801

REACTIONS (1)
  - ANAEMIA [None]
